FAERS Safety Report 8792263 (Version 2)
Quarter: 2012Q4

REPORT INFORMATION
  Report Type: 
  Country: US (occurrence: US)
  Receive Date: 20120918
  Receipt Date: 20121105
  Transmission Date: 20130627
  Serious: No
  Sender: FDA-Public Use
  Company Number: US-PFIZER INC-2012227194

PATIENT
  Age: 56 Year
  Sex: Female
  Weight: 63.5 kg

DRUGS (4)
  1. PREMARIN [Suspect]
     Indication: HOT FLASHES
     Dosage: 0.45 mg, 1x/day
     Route: 048
  2. PREMARIN [Suspect]
     Indication: SWEATING
  3. PREMARIN VAGINAL CREAM [Concomitant]
     Dosage: 1/2 gram-2 x week
  4. LISINOPRIL [Concomitant]
     Indication: BLOOD PRESSURE HIGH
     Dosage: UNK

REACTIONS (5)
  - Urine odour abnormal [Not Recovered/Not Resolved]
  - Vomiting [Not Recovered/Not Resolved]
  - Adnexa uteri pain [Not Recovered/Not Resolved]
  - Drug ineffective [Not Recovered/Not Resolved]
  - Wrong technique in drug usage process [Unknown]
